FAERS Safety Report 9244501 (Version 1)
Quarter: 2013Q2

REPORT INFORMATION
  Report Type: Spontaneous
  Country: US (occurrence: US)
  Receive Date: 20130422
  Receipt Date: 20130422
  Transmission Date: 20140414
  Serious: Yes (Hospitalization)
  Sender: FDA-Public Use
  Company Number: US-BAYER-2013-050215

PATIENT
  Age: 20 Year
  Sex: Female
  Weight: 54.42 kg

DRUGS (6)
  1. YAZ [Suspect]
  2. PERCOCET [Concomitant]
  3. LASIX [Concomitant]
  4. MICRO K [Concomitant]
  5. FLAGYL [Concomitant]
  6. ORTHO TRI-CYCLEN LO [Concomitant]

REACTIONS (1)
  - Pulmonary embolism [None]
